FAERS Safety Report 9197132 (Version 1)
Quarter: 2013Q1

REPORT INFORMATION
  Report Type: Spontaneous
  Country: FR (occurrence: FR)
  Receive Date: 20130328
  Receipt Date: 20130328
  Transmission Date: 20140127
  Serious: Yes (Hospitalization)
  Sender: FDA-Public Use
  Company Number: FR-ROCHE-1207098

PATIENT
  Age: 73 Year
  Sex: Male

DRUGS (1)
  1. ROCEPHINE [Suspect]
     Indication: LUNG DISORDER
     Route: 065
     Dates: start: 20130228, end: 20130304

REACTIONS (1)
  - Pancytopenia [Recovered/Resolved]
